FAERS Safety Report 5172575-9 (Version None)
Quarter: 2006Q4

REPORT INFORMATION
  Report Type: 
  Country: None (occurrence: None)
  Receive Date: 20061205
  Receipt Date: 20061122
  Transmission Date: 20070319
  Serious: Yes (Other)
  Sender: FDA-Public Use
  Company Number: 232970

PATIENT
  Age: 44 Year
  Sex: Male

DRUGS (1)
  1. MABTHERA (RITUXIMAB)CONC FOR SOLUTION FOR INFUSION [Suspect]
     Indication: HAIRY CELL LEUKAEMIA

REACTIONS (5)
  - ARTHRALGIA [None]
  - GASTROINTESTINAL HAEMORRHAGE [None]
  - ORAL MUCOSAL BLISTERING [None]
  - PETECHIAE [None]
  - THROMBOCYTOPENIA [None]
